FAERS Safety Report 13419226 (Version 1)
Quarter: 2017Q2

REPORT INFORMATION
  Report Type: Spontaneous
  Country: US (occurrence: US)
  Receive Date: 20170407
  Receipt Date: 20170407
  Transmission Date: 20170830
  Serious: Yes (Other)
  Sender: FDA-Public Use
  Company Number: US-B.I. PHARMACEUTICALS,INC./RIDGEFIELD-2017-BI-019353

PATIENT
  Sex: Female

DRUGS (1)
  1. DULCOLAX (BISACODYL) [Suspect]
     Active Substance: BISACODYL
     Indication: CONSTIPATION
     Dosage: FORM STRENGTH: 5 MG; FORMULATION: TABLET ADMINISTRATION CORRECT? NR(NOT REPORTED) ACTION(S) TAKEN WI
     Route: 048

REACTIONS (8)
  - Apparent death [Unknown]
  - Pain [Unknown]
  - Abdominal pain upper [Unknown]
  - Ill-defined disorder [Unknown]
  - Burning sensation [Unknown]
  - Hyperhidrosis [Unknown]
  - Defaecation urgency [Unknown]
  - Feeling abnormal [Unknown]
